FAERS Safety Report 19979401 (Version 2)
Quarter: 2021Q4

REPORT INFORMATION
  Report Type: Spontaneous
  Country: US (occurrence: US)
  Receive Date: 20211021
  Receipt Date: 20211026
  Transmission Date: 20220303
  Serious: No
  Sender: FDA-Public Use
  Company Number: US-JNJFOC-20211018627

PATIENT
  Age: 48 Year
  Sex: Female
  Weight: 54.03 kg

DRUGS (2)
  1. TYLENOL [Suspect]
     Active Substance: ACETAMINOPHEN
     Indication: Product used for unknown indication
     Route: 065
  2. COVID-19 VACCINE [Concomitant]
     Indication: Immunisation
     Route: 065
     Dates: start: 20210731

REACTIONS (2)
  - Drug ineffective [Unknown]
  - Paraesthesia [Unknown]
